FAERS Safety Report 5705877-5 (Version None)
Quarter: 2008Q2

REPORT INFORMATION
  Report Type: 
  Country: None (occurrence: None)
  Receive Date: 20080411
  Receipt Date: 20080331
  Transmission Date: 20081010
  Serious: Yes (Hospitalization, Other)
  Sender: FDA-Public Use
  Company Number: 013518

PATIENT
  Sex: Female

DRUGS (10)
  1. PRIALT [Suspect]
     Indication: COMPLEX REGIONAL PAIN SYNDROME
     Dosage: SEE IMAGE
     Route: 037
     Dates: start: 20080327, end: 20080328
  2. PRIALT [Suspect]
     Indication: COMPLEX REGIONAL PAIN SYNDROME
     Dosage: SEE IMAGE
     Route: 037
     Dates: start: 20080328, end: 20080328
  3. PRIALT [Suspect]
     Indication: COMPLEX REGIONAL PAIN SYNDROME
     Dosage: SEE IMAGE
     Route: 037
     Dates: start: 20080328, end: 20080329
  4. PRIALT [Suspect]
     Indication: COMPLEX REGIONAL PAIN SYNDROME
     Dosage: SEE IMAGE
     Route: 037
     Dates: start: 20080329, end: 20080329
  5. PRIALT [Suspect]
     Indication: COMPLEX REGIONAL PAIN SYNDROME
     Dosage: SEE IMAGE
     Route: 037
     Dates: start: 20080329, end: 20080330
  6. PRIALT [Suspect]
     Indication: COMPLEX REGIONAL PAIN SYNDROME
     Dosage: SEE IMAGE
     Route: 037
     Dates: start: 20080330, end: 20080330
  7. BUPIVACAINE [Concomitant]
  8. BACLOFEN [Concomitant]
  9. BACLOFEN [Concomitant]
  10. OPIOIDS [Concomitant]

REACTIONS (4)
  - BACK PAIN [None]
  - MENINGITIS BACTERIAL [None]
  - MENINGITIS CHEMICAL [None]
  - POST LUMBAR PUNCTURE SYNDROME [None]
